FAERS Safety Report 12611446 (Version 3)
Quarter: 2022Q3

REPORT INFORMATION
  Report Type: Spontaneous
  Country: BE (occurrence: BE)
  Receive Date: 20160801
  Receipt Date: 20220905
  Transmission Date: 20221026
  Serious: Yes (Other)
  Sender: FDA-Public Use
  Company Number: BE-MLMSERVICE-20160721-0358575-2

PATIENT
  Age: 55 Year
  Sex: Male

DRUGS (5)
  1. METHYLPREDNISOLONE SODIUM SUCCINATE [Suspect]
     Active Substance: METHYLPREDNISOLONE SODIUM SUCCINATE
     Indication: Immunosuppression
     Dosage: ON DAY 21 AFTER FACIAL TRANSPLANATION
     Route: 042
  2. METHYLPREDNISOLONE SODIUM SUCCINATE [Suspect]
     Active Substance: METHYLPREDNISOLONE SODIUM SUCCINATE
     Indication: Transplant rejection
     Dosage: 4 MG, DAILY, ON DAY 21 AFTER FACIAL TRANSPLANATION
  3. MYCOPHENOLATE MOFETIL [Suspect]
     Active Substance: MYCOPHENOLATE MOFETIL
     Indication: Immunosuppression
     Dosage: 500 MG, 2X/DAY,ON DAY 21 AFTER FACIAL TRANSPLANATION
  4. TACROLIMUS [Suspect]
     Active Substance: TACROLIMUS
     Indication: Immunosuppression
     Dosage: 0.5 MG, 2X/DAY, ON DAY 21 AFTER FACIAL TRANSPLANATION
  5. ITRACONAZOLE [Concomitant]
     Active Substance: ITRACONAZOLE
     Indication: Aspergillus infection
     Dosage: 100 MG, UNK
     Route: 048

REACTIONS (3)
  - Pseudomonas infection [Unknown]
  - Eye infection bacterial [Unknown]
  - Sinusitis bacterial [Unknown]
